FAERS Safety Report 15527126 (Version 4)
Quarter: 2018Q4

REPORT INFORMATION
  Report Type: Spontaneous
  Country: CA (occurrence: CA)
  Receive Date: 20181020
  Receipt Date: 20181218
  Transmission Date: 20190205
  Serious: Yes (Other)
  Sender: FDA-Public Use
  Company Number: CA-AMGEN-CANSP2018145261

PATIENT
  Sex: Male

DRUGS (1)
  1. XGEVA [Suspect]
     Active Substance: DENOSUMAB
     Indication: PROSTATE CANCER
     Dosage: UNK
     Route: 065

REACTIONS (9)
  - Choking [Unknown]
  - Deafness [Not Recovered/Not Resolved]
  - Dental implantation [Unknown]
  - Sinus disorder [Unknown]
  - Adverse event [Not Recovered/Not Resolved]
  - Tinnitus [Unknown]
  - Osteomyelitis [Recovering/Resolving]
  - Pharyngeal erythema [Unknown]
  - Tooth loss [Unknown]

NARRATIVE: CASE EVENT DATE: 201605
